FAERS Safety Report 4331406-7 (Version None)
Quarter: 2004Q1

REPORT INFORMATION
  Report Type: 
  Country: None (occurrence: None)
  Receive Date: 20040329
  Receipt Date: 20040315
  Transmission Date: 20041129
  Serious: Yes (Other)
  Sender: FDA-Public Use
  Company Number: 2004018049

PATIENT
  Age: 48 Year
  Sex: Female
  Weight: 113.3993 kg

DRUGS (6)
  1. NEURONTIN [Suspect]
     Indication: EPILEPSY
     Dosage: ORAL
     Route: 048
  2. AETYLSLICYLIC ACID (ACETYLSALICYLIC ACID) [Concomitant]
  3. OXAZEPAM [Concomitant]
  4. CLONAZEPAM [Concomitant]
  5. ANALGESIC LIQ [Concomitant]
  6. LEVOTHYROXINE SODIUM [Concomitant]

REACTIONS (5)
  - BEDRIDDEN [None]
  - BLINDNESS [None]
  - DRUG INTERACTION [None]
  - NEURALGIA [None]
  - SEXUAL ASSAULT VICTIM [None]
